FAERS Safety Report 5169995-5 (Version None)
Quarter: 2006Q4

REPORT INFORMATION
  Report Type: 
  Country: None (occurrence: None)
  Receive Date: 20061212
  Receipt Date: 20061129
  Transmission Date: 20070319
  Serious: Yes (Hospitalization)
  Sender: FDA-Public Use
  Company Number: FR-GLAXOSMITHKLINE-B0449013A

PATIENT

DRUGS (2)
  1. RETROVIR [Suspect]
     Indication: ANTIVIRAL PROPHYLAXIS
     Dosage: .65MG FOUR TIMES PER DAY
     Route: 048
     Dates: start: 19980720, end: 19980804
  2. EPIVIR [Suspect]
     Indication: ANTIVIRAL PROPHYLAXIS
     Dosage: .65MG TWICE PER DAY
     Route: 048
     Dates: start: 19980720, end: 19980804

REACTIONS (3)
  - ANAEMIA [None]
  - ANAEMIA NEONATAL [None]
  - GRANULOCYTOPENIA [None]
